FAERS Safety Report 5455725-6 (Version None)
Quarter: 2007Q3

REPORT INFORMATION
  Report Type: 
  Country: None (occurrence: None)
  Receive Date: 20070914
  Receipt Date: 20070830
  Transmission Date: 20080115
  Serious: Yes (Hospitalization)
  Sender: FDA-Public Use
  Company Number: 2007001608

PATIENT
  Age: 51 Year
  Sex: Female

DRUGS (4)
  1. ERLOTINIB (TABLET) [Suspect]
     Indication: NON-SMALL CELL LUNG CANCER
     Dosage: 150 MG (QD), ORAL
     Route: 048
     Dates: start: 20070723
  2. BEVACIZUMAB (INJECTION FOR INFUSION) [Suspect]
     Indication: NON-SMALL CELL LUNG CANCER
     Dosage: 10MG/KG (QOW), INTRAVENOUS
     Route: 042
     Dates: start: 20070723
  3. PACLITAXEL [Suspect]
     Dosage: 45 MG (1/WEEK), INTRAVENOUS
     Route: 042
  4. CARBOPLATIN [Suspect]
     Dosage: (2 AUC 1(1/WEEK), INTRAVENOUS
     Route: 042

REACTIONS (3)
  - ALANINE AMINOTRANSFERASE INCREASED [None]
  - ASPARTATE AMINOTRANSFERASE INCREASED [None]
  - OESOPHAGITIS [None]
